FAERS Safety Report 21207472 (Version 1)
Quarter: 2022Q3

REPORT INFORMATION
  Report Type: Spontaneous
  Country: TR (occurrence: TR)
  Receive Date: 20220812
  Receipt Date: 20220812
  Transmission Date: 20221027
  Serious: Yes (Hospitalization)
  Sender: FDA-Public Use
  Company Number: TR-MLMSERVICE-20220803-3714970-1

PATIENT
  Age: 69 Year
  Sex: Female

DRUGS (4)
  1. LOSARTAN POTASSIUM AND HYDROCHLOROTHIAZIDE [Suspect]
     Active Substance: HYDROCHLOROTHIAZIDE\LOSARTAN POTASSIUM
     Indication: Hypertension
     Dosage: UNK
     Route: 048
  2. INSULIN GLARGINE [Suspect]
     Active Substance: INSULIN GLARGINE
     Dosage: 10 UNITS, LONG ACTING
  3. INSULIN NOS [Suspect]
     Active Substance: INSULIN NOS
     Dosage: 18 - 20 UNITS, TWICE A DAY, SHORT ACTING
  4. AMLODIPINE [Suspect]
     Active Substance: AMLODIPINE BESYLATE
     Dosage: UNK

REACTIONS (1)
  - Movement disorder [Unknown]
